FAERS Safety Report 21247732 (Version 1)
Quarter: 2022Q3

REPORT INFORMATION
  Report Type: Spontaneous
  Country: US (occurrence: None)
  Receive Date: 20220824
  Receipt Date: 20220824
  Transmission Date: 20221027
  Serious: No
  Sender: FDA-Public Use
  Company Number: US-Emmaus Medical, Inc.-EMM202110-000191

PATIENT
  Sex: Male
  Weight: 56.7 kg

DRUGS (3)
  1. ENDARI [Suspect]
     Active Substance: GLUTAMINE
     Indication: Sickle cell disease
     Route: 048
     Dates: start: 20201022
  2. HYDROUREA [Concomitant]
     Indication: Sickle cell disease
  3. HYDROUREA [Concomitant]

REACTIONS (1)
  - Rhinorrhoea [Not Recovered/Not Resolved]
